FAERS Safety Report 4996354-8 (Version None)
Quarter: 2006Q2

REPORT INFORMATION
  Report Type: 
  Country: None (occurrence: None)
  Receive Date: 20060509
  Receipt Date: 20060429
  Transmission Date: 20061013
  Serious: Yes (Other)
  Sender: FDA-Public Use
  Company Number: BR-JNJFOC-20060500762

PATIENT
  Age: 7 Year
  Sex: Female
  Weight: 24 kg

DRUGS (5)
  1. TYLENOL (CAPLET) [Suspect]
     Route: 048
  2. TYLENOL (CAPLET) [Suspect]
     Indication: UPPER RESPIRATORY TRACT INFECTION
     Dosage: 25 DROPS (APPROXIMATELY 312 MG) DAILY
     Route: 048
  3. AZITHROMYCIN [Concomitant]
     Indication: INFECTION
     Dosage: 5 ML PER DAY
  4. DICLOFENAC [Concomitant]
     Indication: INFECTION
  5. DEXAMETHASONE/ PHENYLEPHRINE/NEOMYCIN [Concomitant]
     Indication: INFECTION
     Route: 045

REACTIONS (1)
  - DYSKINESIA [None]
